FAERS Safety Report 24721883 (Version 2)
Quarter: 2025Q2

REPORT INFORMATION
  Report Type: Spontaneous
  Country: FR (occurrence: FR)
  Receive Date: 20241211
  Receipt Date: 20250624
  Transmission Date: 20250717
  Serious: Yes (Hospitalization)
  Sender: MYLAN
  Company Number: None

PATIENT
  Age: 70 Year
  Sex: Male
  Weight: 77 kg

DRUGS (32)
  1. ACETAMINOPHEN [Suspect]
     Active Substance: ACETAMINOPHEN
     Indication: Pain
  2. ACETAMINOPHEN [Suspect]
     Active Substance: ACETAMINOPHEN
     Route: 048
  3. ACETAMINOPHEN [Suspect]
     Active Substance: ACETAMINOPHEN
     Route: 048
  4. ACETAMINOPHEN [Suspect]
     Active Substance: ACETAMINOPHEN
  5. ASPIRIN LYSINE [Suspect]
     Active Substance: ASPIRIN LYSINE
     Indication: Pericarditis
     Dosage: 3 GRAM, QD
     Dates: start: 20240905, end: 20240924
  6. ASPIRIN LYSINE [Suspect]
     Active Substance: ASPIRIN LYSINE
     Dosage: 3 GRAM, QD
     Route: 048
     Dates: start: 20240905, end: 20240924
  7. ASPIRIN LYSINE [Suspect]
     Active Substance: ASPIRIN LYSINE
     Dosage: 3 GRAM, QD
     Route: 048
     Dates: start: 20240905, end: 20240924
  8. ASPIRIN LYSINE [Suspect]
     Active Substance: ASPIRIN LYSINE
     Dosage: 3 GRAM, QD
     Dates: start: 20240905, end: 20240924
  9. CODEINE [Suspect]
     Active Substance: CODEINE
     Indication: Pain
  10. CODEINE [Suspect]
     Active Substance: CODEINE
     Route: 048
  11. CODEINE [Suspect]
     Active Substance: CODEINE
     Route: 048
  12. CODEINE [Suspect]
     Active Substance: CODEINE
  13. PURINETHOL [Suspect]
     Active Substance: MERCAPTOPURINE
     Indication: Acute lymphocytic leukaemia
     Dosage: 50 MILLIGRAM, QD
     Dates: start: 202403, end: 20240916
  14. PURINETHOL [Suspect]
     Active Substance: MERCAPTOPURINE
     Dosage: 50 MILLIGRAM, QD
     Route: 048
     Dates: start: 202403, end: 20240916
  15. PURINETHOL [Suspect]
     Active Substance: MERCAPTOPURINE
     Dosage: 50 MILLIGRAM, QD
     Route: 048
     Dates: start: 202403, end: 20240916
  16. PURINETHOL [Suspect]
     Active Substance: MERCAPTOPURINE
     Dosage: 50 MILLIGRAM, QD
     Dates: start: 202403, end: 20240916
  17. VALACYCLOVIR HYDROCHLORIDE [Concomitant]
     Active Substance: VALACYCLOVIR HYDROCHLORIDE
  18. VALACYCLOVIR HYDROCHLORIDE [Concomitant]
     Active Substance: VALACYCLOVIR HYDROCHLORIDE
     Route: 065
  19. VALACYCLOVIR HYDROCHLORIDE [Concomitant]
     Active Substance: VALACYCLOVIR HYDROCHLORIDE
     Route: 065
  20. VALACYCLOVIR HYDROCHLORIDE [Concomitant]
     Active Substance: VALACYCLOVIR HYDROCHLORIDE
  21. ATOVAQUONE [Concomitant]
     Active Substance: ATOVAQUONE
  22. ATOVAQUONE [Concomitant]
     Active Substance: ATOVAQUONE
     Route: 065
  23. ATOVAQUONE [Concomitant]
     Active Substance: ATOVAQUONE
     Route: 065
  24. ATOVAQUONE [Concomitant]
     Active Substance: ATOVAQUONE
  25. DOXAZOSIN MESYLATE [Concomitant]
     Active Substance: DOXAZOSIN MESYLATE
  26. DOXAZOSIN MESYLATE [Concomitant]
     Active Substance: DOXAZOSIN MESYLATE
     Route: 065
  27. DOXAZOSIN MESYLATE [Concomitant]
     Active Substance: DOXAZOSIN MESYLATE
     Route: 065
  28. DOXAZOSIN MESYLATE [Concomitant]
     Active Substance: DOXAZOSIN MESYLATE
  29. PANTOPRAZOLE [Concomitant]
     Active Substance: PANTOPRAZOLE
  30. PANTOPRAZOLE [Concomitant]
     Active Substance: PANTOPRAZOLE
     Route: 065
  31. PANTOPRAZOLE [Concomitant]
     Active Substance: PANTOPRAZOLE
     Route: 065
  32. PANTOPRAZOLE [Concomitant]
     Active Substance: PANTOPRAZOLE

REACTIONS (2)
  - Staphylococcal bacteraemia [Recovered/Resolved]
  - Device related bacteraemia [Recovered/Resolved]

NARRATIVE: CASE EVENT DATE: 20240916
